FAERS Safety Report 7809801-0 (Version None)
Quarter: 2011Q4

REPORT INFORMATION
  Report Type: 
  Country: None (occurrence: None)
  Receive Date: 20111006
  Receipt Date: 20110920
  Transmission Date: 20120403
  Serious: Yes (Other)
  Sender: FDA-Public Use
  Company Number: B0751424A

PATIENT
  Age: 30 Year
  Sex: Male
  Weight: 24.9478 kg

DRUGS (3)
  1. EFAVIRENZ [Suspect]
     Indication: HIV INFECTION
  2. LAMIVUDINE [Suspect]
     Indication: HIV INFECTION
  3. ZIDOVUDINE [Suspect]
     Indication: HIV INFECTION

REACTIONS (10)
  - CRYPTOSPORIDIOSIS INFECTION [None]
  - IMMUNE RECONSTITUTION SYNDROME [None]
  - ABDOMINAL PAIN UPPER [None]
  - WATER POLLUTION [None]
  - WEIGHT DECREASED [None]
  - CHOLANGITIS [None]
  - ABDOMINAL PAIN [None]
  - DIARRHOEA [None]
  - CELL DEATH [None]
  - CHOLESTASIS [None]
